FAERS Safety Report 15535407 (Version 3)
Quarter: 2019Q1

REPORT INFORMATION
  Report Type: Spontaneous
  Country: PL (occurrence: PL)
  Receive Date: 20181022
  Receipt Date: 20190315
  Transmission Date: 20190417
  Serious: Yes (Life-Threatening, Hospitalization, Other)
  Sender: FDA-Public Use
  Company Number: PL-ACCORD-073746

PATIENT
  Age: 58 Year
  Sex: Female

DRUGS (16)
  1. TACROLIMUS. [Suspect]
     Active Substance: TACROLIMUS
     Indication: RENAL TRANSPLANT
     Dosage: UNKNOWN FREQUENCY
     Route: 065
     Dates: start: 201606, end: 201606
  2. MIDAZOLAM [Suspect]
     Active Substance: MIDAZOLAM HYDROCHLORIDE
     Indication: SEDATION
     Dosage: UNK, UNKNOWN FREQENCY
     Route: 065
     Dates: start: 2016
  3. NOREPINEPHRINE. [Concomitant]
     Active Substance: NOREPINEPHRINE
     Indication: CARDIAC DISORDER
     Dosage: 10 ML / HOUR
     Dates: start: 2016
  4. PIPERACILLIN/TAZOBACTAM [Suspect]
     Active Substance: PIPERACILLIN SODIUM\TAZOBACTAM SODIUM
     Indication: PRODUCT USED FOR UNKNOWN INDICATION
     Dosage: 1 DOSAGE FORM IS EQUAL TO PIPERACILLIN PLUS TAZOBACTAM
     Dates: start: 201612
  5. SULFAMETHOXAZOLE/TRIMETHOPRIM [Suspect]
     Active Substance: SULFAMETHOXAZOLE\TRIMETHOPRIM
     Indication: C-REACTIVE PROTEIN INCREASED
     Dosage: 1 DOSAGE FORM IS EQUAL TO COTRIMOXAZOLE PLUS TRIMETHOPRIM
     Dates: start: 201612
  6. SIMULECT [Suspect]
     Active Substance: BASILIXIMAB
     Indication: RENAL TRANSPLANT
     Dosage: UNK, UNKNOWN FREQ.
     Route: 065
  7. MEROPENEM. [Suspect]
     Active Substance: MEROPENEM
     Indication: PRODUCT USED FOR UNKNOWN INDICATION
     Dates: start: 2016
  8. FLUCONAZOLE. [Suspect]
     Active Substance: FLUCONAZOLE
     Indication: PRODUCT USED FOR UNKNOWN INDICATION
  9. METHYLPREDNISOLONE. [Suspect]
     Active Substance: METHYLPREDNISOLONE
     Indication: PRODUCT USED FOR UNKNOWN INDICATION
     Dosage: FIVE PULSES OF METHYL PREDNISOLONE 500 MG WERE ADMINISTERED INTRAVENOUSLY
     Route: 042
     Dates: start: 201612
  10. CIPROFLOXACIN. [Suspect]
     Active Substance: CIPROFLOXACIN
     Indication: PRODUCT USED FOR UNKNOWN INDICATION
     Dates: start: 201612
  11. CICLOSPORIN [Suspect]
     Active Substance: CYCLOSPORINE
     Indication: PRODUCT USED FOR UNKNOWN INDICATION
     Dates: start: 2016
  12. ACETYLSALICYLIC ACID [Suspect]
     Active Substance: ASPIRIN
     Indication: RENAL TRANSPLANT
     Dates: start: 2016
  13. TICAGRELOR. [Suspect]
     Active Substance: TICAGRELOR
     Indication: PRODUCT USED FOR UNKNOWN INDICATION
  14. LINEZOLID. [Suspect]
     Active Substance: LINEZOLID
     Indication: PRODUCT USED FOR UNKNOWN INDICATION
     Dates: start: 2016
  15. CLOPIDOGREL [Suspect]
     Active Substance: CLOPIDOGREL BISULFATE
     Indication: PRODUCT USED FOR UNKNOWN INDICATION
  16. MYCOPHENOLIC ACID. [Suspect]
     Active Substance: MYCOPHENOLIC ACID
     Indication: RENAL TRANSPLANT
     Route: 065
     Dates: start: 201606

REACTIONS (28)
  - Thrombocytosis [Unknown]
  - Hypotonia [Unknown]
  - Haematoma [Not Recovered/Not Resolved]
  - Brain natriuretic peptide increased [Unknown]
  - Cardiac arrest [Not Recovered/Not Resolved]
  - Pulmonary congestion [Unknown]
  - Renal impairment [Unknown]
  - Escherichia urinary tract infection [Unknown]
  - Diabetic macroangiopathy [Unknown]
  - Acute coronary syndrome [Unknown]
  - Delayed graft function [Unknown]
  - Anuria [Not Recovered/Not Resolved]
  - Transplant rejection [Unknown]
  - Acid base balance abnormal [Recovering/Resolving]
  - Upper respiratory tract infection [Unknown]
  - Cardiogenic shock [Recovered/Resolved]
  - Electrocardiogram ST segment depression [Unknown]
  - Coronary artery stenosis [Unknown]
  - Cardiac failure [Unknown]
  - Condition aggravated [Unknown]
  - Cardiotoxicity [Unknown]
  - Extremity necrosis [Unknown]
  - Intermittent claudication [Unknown]
  - Inflammation [Recovering/Resolving]
  - Pneumonitis [Not Recovered/Not Resolved]
  - Immunosuppressant drug level increased [Unknown]
  - Anaemia [Unknown]
  - Electrolyte imbalance [Recovered/Resolved]

NARRATIVE: CASE EVENT DATE: 2016
